FAERS Safety Report 18236689 (Version 2)
Quarter: 2020Q3

REPORT INFORMATION
  Report Type: Report from Study
  Country: None (occurrence: US)
  Receive Date: 20200907
  Receipt Date: 20200917
  Transmission Date: 20201103
  Serious: Yes (Hospitalization)
  Sender: FDA-Public Use
  Company Number: US-ABBVIE-20K-163-3553794-00

PATIENT
  Age: 53 Year
  Sex: Female

DRUGS (3)
  1. XOSPATA [Concomitant]
     Active Substance: GILTERITINIB
     Indication: ACUTE MYELOID LEUKAEMIA
     Route: 048
     Dates: start: 20200729
  2. VENCLEXTA [Suspect]
     Active Substance: VENETOCLAX
     Indication: ACUTE MYELOID LEUKAEMIA
     Dosage: WALLET CARD
     Route: 048
     Dates: start: 20200729, end: 2020
  3. VENCLEXTA [Suspect]
     Active Substance: VENETOCLAX
     Dosage: WALLET CARD
     Route: 048
     Dates: start: 2020, end: 2020

REACTIONS (1)
  - Infected bite [Unknown]

NARRATIVE: CASE EVENT DATE: 202008
